FAERS Safety Report 9527592 (Version 1)
Quarter: 2013Q1

REPORT INFORMATION
  Report Type: Spontaneous
  Country: US (occurrence: None)
  Receive Date: 20130314
  Receipt Date: 20130314
  Transmission Date: 20140127
  Serious: Yes (Other)
  Sender: FDA-Public Use
  Company Number: 1212USA002250

PATIENT
  Age: 61 Year
  Sex: Female

DRUGS (3)
  1. RIBAVIRIN (RIBAVIRIN) CAPSULE [Suspect]
     Indication: HEPATITIS C
     Dosage: UNK, ORAL
     Route: 048
     Dates: start: 20121113
  2. VICTRELIS [Concomitant]
     Indication: HEPATITIS C
     Dosage: UNK, ORAL
     Route: 048
     Dates: start: 20121214
  3. PEGASYS [Suspect]
     Indication: HEPATITIS C
     Dosage: UNK
     Dates: start: 20121113

REACTIONS (9)
  - Blood glucose decreased [None]
  - Hypoglycaemia [None]
  - Hypoaesthesia [None]
  - Dizziness [None]
  - Nasopharyngitis [None]
  - Dry eye [None]
  - Dry skin [None]
  - Chapped lips [None]
  - Anaemia [None]
